FAERS Safety Report 15297321 (Version 3)
Quarter: 2018Q3

REPORT INFORMATION
  Report Type: Report from Study
  Country: BR (occurrence: BR)
  Receive Date: 20180820
  Receipt Date: 20180919
  Transmission Date: 20181010
  Serious: Yes (Other)
  Sender: FDA-Public Use
  Company Number: PHHY2018BR073292

PATIENT
  Age: 66 Year
  Sex: Male
  Weight: 66 kg

DRUGS (3)
  1. EXJADE [Suspect]
     Active Substance: DEFERASIROX
     Dosage: 500 MG, QD
     Route: 048
     Dates: start: 20180902
  2. EXJADE [Suspect]
     Active Substance: DEFERASIROX
     Indication: MYELOFIBROSIS
     Dosage: 500 MG, QD
     Route: 048
     Dates: start: 20180718, end: 20180814
  3. TALIDOMIDA [Concomitant]
     Active Substance: THALIDOMIDE
     Indication: PRODUCT USED FOR UNKNOWN INDICATION
     Route: 065

REACTIONS (12)
  - Malaise [Recovering/Resolving]
  - Asthenia [Recovering/Resolving]
  - Gait disturbance [Unknown]
  - Haemoglobin decreased [Recovering/Resolving]
  - Weight increased [Not Recovered/Not Resolved]
  - Immunodeficiency [Recovering/Resolving]
  - Red blood cell count decreased [Recovering/Resolving]
  - Scratch [Not Recovered/Not Resolved]
  - Influenza like illness [Recovering/Resolving]
  - Pyrexia [Not Recovered/Not Resolved]
  - Sneezing [Recovering/Resolving]
  - Serum ferritin increased [Not Recovered/Not Resolved]

NARRATIVE: CASE EVENT DATE: 201808
